FAERS Safety Report 21771319 (Version 1)
Quarter: 2022Q4

REPORT INFORMATION
  Report Type: Spontaneous
  Country: CN (occurrence: CN)
  Receive Date: 20221223
  Receipt Date: 20221223
  Transmission Date: 20230113
  Serious: Yes (Death, Other)
  Sender: FDA-Public Use
  Company Number: CN-SUN PHARMACEUTICAL INDUSTRIES LTD-2022R1-363130

PATIENT
  Age: 59 Year
  Sex: Male

DRUGS (12)
  1. MIDAZOLAM [Suspect]
     Active Substance: MIDAZOLAM
     Indication: Rabies
     Route: 065
  2. PROPOFOL [Suspect]
     Active Substance: PROPOFOL
     Indication: Rabies
     Route: 065
  3. AMANTADINE [Suspect]
     Active Substance: AMANTADINE
     Indication: Rabies
     Route: 065
  4. PENEQUININE [Suspect]
     Active Substance: PENEQUININE
     Indication: Pulmonary oedema
     Route: 065
  5. PENEQUININE [Suspect]
     Active Substance: PENEQUININE
     Indication: Salivary hypersecretion
  6. RIBAVIRIN [Suspect]
     Active Substance: RIBAVIRIN
     Indication: Rabies
     Route: 065
  7. EPINEPHRINE [Suspect]
     Active Substance: EPINEPHRINE
     Dosage: UNK
     Route: 065
  8. EPINEPHRINE [Suspect]
     Active Substance: EPINEPHRINE
     Indication: Hypotension
  9. EPINEPHRINE [Suspect]
     Active Substance: EPINEPHRINE
  10. NOREPINEPHRINE [Suspect]
     Active Substance: NOREPINEPHRINE
     Route: 065
  11. NOREPINEPHRINE [Suspect]
     Active Substance: NOREPINEPHRINE
     Indication: Hypotension
  12. NOREPINEPHRINE [Suspect]
     Active Substance: NOREPINEPHRINE

REACTIONS (2)
  - Condition aggravated [Fatal]
  - Drug ineffective [Fatal]
